FAERS Safety Report 19827152 (Version 2)
Quarter: 2021Q4

REPORT INFORMATION
  Report Type: Spontaneous
  Country: US (occurrence: US)
  Receive Date: 20210914
  Receipt Date: 20211016
  Transmission Date: 20220303
  Serious: Yes (Other)
  Sender: FDA-Public Use
  Company Number: US-SA-SAC20210913000987

PATIENT
  Age: 34 Year
  Sex: Male

DRUGS (6)
  1. ALPROLIX [Suspect]
     Active Substance: EFTRENONACOG ALFA
     Indication: Factor IX deficiency
     Dosage: INFUSE 10, 000 UNITS (+/-10%) , BIW
     Route: 042
  2. ALPROLIX [Suspect]
     Active Substance: EFTRENONACOG ALFA
     Indication: Factor IX deficiency
     Dosage: INFUSE 10, 000 UNITS (+/-10%) , BIW
     Route: 042
  3. ALPROLIX [Suspect]
     Active Substance: EFTRENONACOG ALFA
     Indication: Haemorrhage
     Dosage: INFUSE 10, 000 UNITS (+/-10%) , QD
     Route: 042
  4. ALPROLIX [Suspect]
     Active Substance: EFTRENONACOG ALFA
     Indication: Haemorrhage
     Dosage: INFUSE 10, 000 UNITS (+/-10%) , QD
     Route: 042
  5. ALPROLIX [Suspect]
     Active Substance: EFTRENONACOG ALFA
     Dosage: 1-2 TIMES PER MONTH
     Route: 042
  6. ALPROLIX [Suspect]
     Active Substance: EFTRENONACOG ALFA
     Dosage: 1-2 TIMES PER MONTH
     Route: 042

REACTIONS (2)
  - Haemorrhage [Unknown]
  - Inappropriate schedule of product administration [Unknown]

NARRATIVE: CASE EVENT DATE: 20210825
